FAERS Safety Report 23254144 (Version 1)
Quarter: 2023Q4

REPORT INFORMATION
  Report Type: Spontaneous
  Country: US (occurrence: US)
  Receive Date: 20231202
  Receipt Date: 20231202
  Transmission Date: 20240110
  Serious: Yes (Death, Hospitalization, Other)
  Sender: FDA-Public Use
  Company Number: US-AMGEN-USASP2023210512

PATIENT

DRUGS (4)
  1. BEVACIZUMAB [Suspect]
     Active Substance: BEVACIZUMAB
     Indication: Neoplasm
     Dosage: UNK
     Route: 065
  2. ATEZOLIZUMAB [Concomitant]
     Active Substance: ATEZOLIZUMAB
     Indication: Neoplasm
  3. DURVALUMAB [Concomitant]
     Active Substance: DURVALUMAB
     Indication: Neoplasm
  4. PEMBROLIZUMAB [Concomitant]
     Active Substance: PEMBROLIZUMAB
     Indication: Neoplasm

REACTIONS (18)
  - Death [Fatal]
  - Nephritis [Unknown]
  - Encephalitis [Unknown]
  - Dermatitis [Unknown]
  - Hepatitis [Unknown]
  - Colitis [Unknown]
  - Chronic kidney disease [Unknown]
  - Hepatic cirrhosis [Unknown]
  - Unevaluable event [Unknown]
  - Pancreatitis [Unknown]
  - Pneumonitis [Unknown]
  - Cardiac failure congestive [Unknown]
  - Thrombocytopenia [Unknown]
  - Chronic obstructive pulmonary disease [Unknown]
  - Hypophysitis [Unknown]
  - Thyroiditis [Unknown]
  - Myositis [Unknown]
  - Arthralgia [Unknown]
